FAERS Safety Report 5280828-9 (Version None)
Quarter: 2007Q1

REPORT INFORMATION
  Report Type: 
  Country: None (occurrence: None)
  Receive Date: 20070329
  Receipt Date: 20070326
  Transmission Date: 20070707
  Serious: Yes (Other)
  Sender: FDA-Public Use
  Company Number: 2007UW06101

PATIENT
  Age: 70 Year
  Sex: Male
  Weight: 70.3 kg

DRUGS (7)
  1. SEROQUEL [Suspect]
     Indication: AGITATION
     Route: 048
  2. SEROQUEL [Suspect]
     Indication: DEMENTIA ALZHEIMER'S TYPE
     Route: 048
  3. SEROQUEL [Suspect]
     Route: 048
  4. SEROQUEL [Suspect]
     Route: 048
  5. LEXAPRO [Concomitant]
  6. NAMENDA [Concomitant]
  7. BLOOD PRESSURE AND THYROID MEDICATION [Concomitant]

REACTIONS (3)
  - AGITATION [None]
  - DYSARTHRIA [None]
  - VISUAL ACUITY REDUCED [None]
